FAERS Safety Report 4285453-4 (Version None)
Quarter: 2004Q1

REPORT INFORMATION
  Report Type: 
  Country: None (occurrence: None)
  Receive Date: 20040202
  Receipt Date: 20040120
  Transmission Date: 20041129
  Serious: Yes (Hospitalization)
  Sender: FDA-Public Use
  Company Number: US-JNJFOC-20040104033

PATIENT
  Age: 73 Year
  Sex: Female
  Weight: 54.4316 kg

DRUGS (9)
  1. INFLIXIMAB (INFLIXIMAB, RECOMBINANT) LYOPHILIZED POWDER [Suspect]
     Indication: RHEUMATOID ARTHRITIS
     Dosage: INTRAVENOUS
     Route: 042
     Dates: start: 20020615
  2. POTASSIUM (POTASSIUM) [Concomitant]
  3. PREDNISONE [Concomitant]
  4. METHOTREXATE [Concomitant]
  5. LOPRESSOR [Concomitant]
  6. CATAPRES [Concomitant]
  7. SALAGEN [Concomitant]
  8. DARVOCET (PROPACET) [Concomitant]
  9. COMBIVENT [Concomitant]

REACTIONS (10)
  - CARDIAC IMAGING PROCEDURE ABNORMAL [None]
  - EJECTION FRACTION DECREASED [None]
  - GASTRIC ULCER [None]
  - GASTROOESOPHAGEAL REFLUX DISEASE [None]
  - HYPERTENSION [None]
  - SKIN FIBROSIS [None]
  - SKIN GRAFT [None]
  - SKIN HYPERPIGMENTATION [None]
  - SKIN ULCER [None]
  - VENTRICULAR DYSFUNCTION [None]
